FAERS Safety Report 11521504 (Version 5)
Quarter: 2016Q1

REPORT INFORMATION
  Report Type: Report from Study
  Country: FR (occurrence: FR)
  Receive Date: 20150918
  Receipt Date: 20160120
  Transmission Date: 20160525
  Serious: Yes (Hospitalization)
  Sender: FDA-Public Use
  Company Number: FR-009507513-1504FRA020042

PATIENT
  Age: 93 Year
  Sex: Female
  Weight: 88 kg

DRUGS (13)
  1. SEROPLEX [Concomitant]
     Active Substance: ESCITALOPRAM OXALATE
     Dosage: UNK, QD, USUAL TREATMENT
  2. GEL LARMES [Concomitant]
     Dosage: 1 GTT, QID, USUAL TREATMENT
  3. AMLODIPINE [Concomitant]
     Active Substance: AMLODIPINE BESYLATE
     Dosage: QD, USUAL TREATMENT
  4. FIDAXOMICIN [Suspect]
     Active Substance: FIDAXOMICIN
     Indication: CLOSTRIDIUM DIFFICILE INFECTION
     Dosage: 200 MG, BID
     Route: 048
     Dates: start: 20141021, end: 20141030
  5. DIFFU-K [Concomitant]
     Active Substance: POTASSIUM CHLORIDE
     Dosage: TID, USUAL TREATMENT
  6. ENOXAPARIN SODIUM. [Concomitant]
     Active Substance: ENOXAPARIN SODIUM
     Dosage: 4000 IU, QD
     Dates: start: 20141013, end: 20141112
  7. FUROSEMIDE. [Concomitant]
     Active Substance: FUROSEMIDE
     Dosage: (1 TABLET), QD, USUAL TREATMENT
     Route: 048
  8. CLOPIDOGREL [Concomitant]
     Active Substance: CLOPIDOGREL BISULFATE
     Dosage: USUAL TREATMENT
     Dates: end: 20141022
  9. TEMESTA [Concomitant]
     Active Substance: LORAZEPAM
     Dosage: UNK, BID, USUAL TREATMENT
  10. OXYCONTIN [Concomitant]
     Active Substance: OXYCODONE HYDROCHLORIDE
     Dosage: UNK, BID
     Dates: start: 20141022
  11. DOLIPRANE [Concomitant]
     Active Substance: ACETAMINOPHEN
     Dosage: SIX DAILY
     Dates: start: 20141013
  12. AMOXICILLIN (+) CLAVULANATE POTASSIUM [Concomitant]
     Active Substance: AMOXICILLIN\CLAVULANATE POTASSIUM
     Dosage: 1 G, TID
     Dates: start: 20141014, end: 20141022
  13. TRANSIPEG [Concomitant]
     Active Substance: POLYETHYLENE GLYCOL 3350
     Dosage: UNK, BID, ON REQUEST

REACTIONS (3)
  - Cell death [Recovered/Resolved]
  - Hepatic enzyme abnormal [Recovering/Resolving]
  - Cholestasis [Recovered/Resolved]

NARRATIVE: CASE EVENT DATE: 20141103
